FAERS Safety Report 8498221 (Version 2)
Quarter: 2012Q4

REPORT INFORMATION
  Report Type: 
  Country: BR (occurrence: BR)
  Receive Date: 20120406
  Receipt Date: 20121010
  Transmission Date: 20130627
  Serious: Yes (Other)
  Sender: FDA-Public Use
  Company Number: US-ASTRAZENECA-2012SE21350

PATIENT
  Age: 74 Year
  Sex: Female
  Weight: 94 kg

DRUGS (3)
  1. ATENOLOL [Suspect]
     Indication: ARRHYTHMIA
     Route: 048
  2. CRESTOR [Suspect]
     Indication: BLOOD CHOLESTEROL INCREASED
     Route: 048
  3. CO-RENITEC [Concomitant]
     Route: 048

REACTIONS (2)
  - Diabetes mellitus [Not Recovered/Not Resolved]
  - Blood cholesterol increased [Recovered/Resolved]
